FAERS Safety Report 13828183 (Version 1)
Quarter: 2017Q3

REPORT INFORMATION
  Report Type: Spontaneous
  Country: US (occurrence: US)
  Receive Date: 20170803
  Receipt Date: 20170803
  Transmission Date: 20171127
  Serious: Yes (Hospitalization, Other)
  Sender: FDA-Public Use
  Company Number: US-ROCHE-1968346

PATIENT
  Age: 43 Year
  Sex: Male

DRUGS (2)
  1. TYSABRI [Concomitant]
     Active Substance: NATALIZUMAB
     Indication: MULTIPLE SCLEROSIS
     Dosage: 57 INFUSIONS OF TYSABRI
     Route: 065
  2. OCREVUS [Suspect]
     Active Substance: OCRELIZUMAB
     Indication: MULTIPLE SCLEROSIS
     Route: 065

REACTIONS (7)
  - Herpes simplex test positive [Unknown]
  - Encephalitis [Unknown]
  - Cerebral disorder [Unknown]
  - Status epilepticus [Unknown]
  - Unresponsive to stimuli [Unknown]
  - Meningitis herpes [Unknown]
  - Hemiparesis [Unknown]
